FAERS Safety Report 25675704 (Version 1)
Quarter: 2025Q3

REPORT INFORMATION
  Report Type: Report from Study
  Country: MX (occurrence: MX)
  Receive Date: 20250813
  Receipt Date: 20250813
  Transmission Date: 20251020
  Serious: Yes (Other)
  Sender: SANDOZ
  Company Number: MX-SANDOZ-SDZ2025MX058018

PATIENT
  Age: 13 Year
  Sex: Male
  Weight: 73 kg

DRUGS (1)
  1. OMNITROPE [Suspect]
     Active Substance: SOMATROPIN
     Indication: Growth disorder
     Dosage: 2.8 MG, QD
     Route: 058
     Dates: start: 202403

REACTIONS (3)
  - Syncope [Unknown]
  - Injection site haemorrhage [Unknown]
  - Fear of injection [Unknown]

NARRATIVE: CASE EVENT DATE: 20250624
